FAERS Safety Report 8764955 (Version 3)
Quarter: 2012Q4

REPORT INFORMATION
  Report Type: Report from Study
  Country: BE (occurrence: BE)
  Receive Date: 20120903
  Receipt Date: 20121116
  Transmission Date: 20130627
  Serious: Yes (Other)
  Sender: FDA-Public Use
  Company Number: BE-BRISTOL-MYERS SQUIBB COMPANY-16888554

PATIENT
  Age: 51 Year
  Sex: Female
  Weight: 57 kg

DRUGS (7)
  1. CISPLATIN [Suspect]
     Indication: NON-SMALL CELL LUNG CANCER
     Dosage: Last dose on 09Aug11
     Route: 042
     Dates: start: 20110607
  2. PEMETREXED DISODIUM [Suspect]
     Indication: NON-SMALL CELL LUNG CANCER
     Dosage: Pemetrexed disodium vial last dose on 10jul12
     Route: 042
     Dates: start: 20110607
  3. FOLIC ACID [Concomitant]
     Dates: start: 20110520
  4. VITAMIN B12 [Concomitant]
     Dates: start: 20110524
  5. DEXAMETHASONE [Concomitant]
     Dates: start: 20120709, end: 20120711
  6. PANTOPRAZOLE [Concomitant]
     Dates: start: 20110520
  7. DENOSUMAB [Concomitant]
     Dates: start: 20120619

REACTIONS (1)
  - Ulcerative keratitis [Not Recovered/Not Resolved]
